FAERS Safety Report 5019767-7 (Version None)
Quarter: 2006Q2

REPORT INFORMATION
  Report Type: 
  Country: None (occurrence: None)
  Receive Date: 20060601
  Receipt Date: 20060523
  Transmission Date: 20061013
  Serious: Yes (Other)
  Sender: FDA-Public Use
  Company Number: 2006069018

PATIENT
  Age: 35 Year
  Sex: Female

DRUGS (3)
  1. DEPO-PROVERA [Suspect]
     Indication: MENSTRUAL DISCOMFORT
     Dosage: 150 MG (150 MG, FIRST INJECTION/ TRIMESTRAL)
     Dates: start: 20060422, end: 20060422
  2. DEPO-PROVERA [Suspect]
     Indication: UTERINE LEIOMYOMA
     Dosage: 150 MG (150 MG, FIRST INJECTION/ TRIMESTRAL)
     Dates: start: 20060422, end: 20060422
  3. ATENOLOL [Concomitant]

REACTIONS (4)
  - EPINEPHRINE INCREASED [None]
  - LABORATORY TEST INTERFERENCE [None]
  - NOREPINEPHRINE INCREASED [None]
  - TACHYCARDIA [None]
